FAERS Safety Report 8920595 (Version 1)
Quarter: 2012Q4

REPORT INFORMATION
  Report Type: 
  Country: MX (occurrence: MX)
  Receive Date: 20121121
  Receipt Date: 20121121
  Transmission Date: 20130627
  Serious: Yes (Other)
  Sender: FDA-Public Use
  Company Number: MX-BAYER-2012-121845

PATIENT
  Sex: Female

DRUGS (2)
  1. CANESTEN V OVULOS [Suspect]
     Indication: DYSURIA
     Dosage: UNK
     Route: 067
     Dates: start: 201211
  2. CANESTEN V OVULOS [Suspect]
     Indication: URINATION PAIN

REACTIONS (1)
  - Genital haemorrhage [Not Recovered/Not Resolved]
